FAERS Safety Report 9061924 (Version 1)
Quarter: 2013Q1

REPORT INFORMATION
  Report Type: Spontaneous
  Country: GB (occurrence: None)
  Receive Date: 20130118
  Receipt Date: 20130118
  Transmission Date: 20140127
  Serious: Yes (Hospitalization)
  Sender: FDA-Public Use
  Company Number: AUR-APL-2013-00480

PATIENT
  Age: 73 Year
  Sex: Male

DRUGS (7)
  1. AMOXICILLIN+CLAVULANIC ACID [Suspect]
     Indication: STREPTOCOCCAL SEPSIS
     Dosage: (625 MG, 3 IN 1 D)
     Route: 048
     Dates: start: 20110311, end: 20110313
  2. FLUCLOXACILLIN (FLUCLOXACILLIN) [Suspect]
     Indication: ULCER
     Dosage: (500 MG, 4 IN 1 D)
     Route: 048
     Dates: start: 20110302, end: 20110306
  3. PIPERACILLIN+TAZOBACTAM [Suspect]
     Indication: PRODUCT USED FOR UNKNOWN INDICATION
     Dosage: (4.5 GM, 3 IN 1D)
     Route: 042
     Dates: start: 20110316, end: 20110317
  4. METRONIDAZOLE (METRONIDAZOLE) [Suspect]
     Dosage: (400 MG, 3 IN 1 D)
     Route: 048
     Dates: start: 20110305, end: 20110306
  5. CO-AMOXICLAV [Suspect]
     Dosage: (1.2 GM, 3 IN 1 D)
     Route: 042
     Dates: start: 20110406, end: 20110406
  6. TEICOPLANIN (TEICOPLANIN) [Suspect]
     Route: 042
     Dates: start: 20110305, end: 20110305
  7. SULPIRIDE (SULPIRIDE) [Concomitant]

REACTIONS (6)
  - Hypertension [None]
  - Hypophagia [None]
  - Diarrhoea [None]
  - Vomiting [None]
  - Clostridium difficile infection [None]
  - Norovirus test positive [None]
